FAERS Safety Report 23813705 (Version 2)
Quarter: 2024Q2

REPORT INFORMATION
  Report Type: Spontaneous
  Country: US (occurrence: US)
  Receive Date: 20240503
  Receipt Date: 20240515
  Transmission Date: 20240716
  Serious: Yes (Hospitalization, Other)
  Sender: FDA-Public Use
  Company Number: US-MELINTA THERAPEUTICS, LLC-US-MLNT-24-00206

PATIENT

DRUGS (5)
  1. ORBACTIV [Suspect]
     Active Substance: ORITAVANCIN
     Indication: Staphylococcal infection
     Dosage: 1200 MILLIGRAM, SINGLE
     Route: 041
     Dates: start: 20240206, end: 20240206
  2. ORBACTIV [Suspect]
     Active Substance: ORITAVANCIN
     Indication: Chronic sinusitis
     Dosage: 1200 MILLIGRAM, SINGLE
     Route: 041
     Dates: start: 20240227, end: 20240227
  3. DECADRON [Concomitant]
     Active Substance: DEXAMETHASONE
     Indication: Premedication
     Dosage: 4 MILLIGRAM, SINGLE
     Route: 042
     Dates: start: 20240227, end: 20240227
  4. DIPHENHYDRAMINE [Concomitant]
     Active Substance: DIPHENHYDRAMINE
     Indication: Premedication
     Dosage: 25 MILLIGRAM, SINGLE
     Route: 042
     Dates: start: 20240227, end: 20240227
  5. TYLENOL [Concomitant]
     Active Substance: ACETAMINOPHEN
     Indication: Premedication
     Dosage: 500 MILLIGRAM X 2
     Route: 048
     Dates: start: 20240227, end: 20240227

REACTIONS (10)
  - Pulmonary embolism [Unknown]
  - Blood pressure fluctuation [Recovering/Resolving]
  - Pallor [Recovering/Resolving]
  - Emotional distress [Recovering/Resolving]
  - Nausea [Recovered/Resolved]
  - Back pain [Recovering/Resolving]
  - Chest pain [Recovering/Resolving]
  - Multiple use of single-use product [Recovering/Resolving]
  - Product use issue [Recovering/Resolving]
  - Off label use [Recovering/Resolving]

NARRATIVE: CASE EVENT DATE: 20240206
